FAERS Safety Report 22638482 (Version 2)
Quarter: 2023Q2

REPORT INFORMATION
  Report Type: Report from Study
  Country: FR (occurrence: FR)
  Receive Date: 20230626
  Receipt Date: 20230629
  Transmission Date: 20230722
  Serious: Yes (Hospitalization, Other)
  Sender: FDA-Public Use
  Company Number: FR-002147023-NVSC2023FR047880

PATIENT
  Sex: Male
  Weight: 86 kg

DRUGS (6)
  1. PLUVICTO [Suspect]
     Active Substance: LUTETIUM LU-177 VIPIVOTIDE TETRAXETAN
     Indication: Prostate cancer
     Dosage: 6503 MBQ, ONCE (1ST CYCLE)
     Route: 042
     Dates: start: 20230223, end: 20230223
  2. PLUVICTO [Suspect]
     Active Substance: LUTETIUM LU-177 VIPIVOTIDE TETRAXETAN
     Dosage: 5564 MBQ, ONCE (2ND CYCLE)
     Route: 042
     Dates: start: 20230406, end: 20230406
  3. FIRMAGON [Concomitant]
     Active Substance: DEGARELIX ACETATE
     Indication: Product used for unknown indication
     Dosage: UNK UNK, QMO (MONTHLY)
     Route: 065
  4. ACETAMINOPHEN [Concomitant]
     Active Substance: ACETAMINOPHEN
     Indication: Product used for unknown indication
     Dosage: 1000 MG, LONG TERM TREATMENT
     Route: 065
  5. MORPHINE SULFATE [Concomitant]
     Active Substance: MORPHINE SULFATE
     Indication: Product used for unknown indication
     Dosage: 5 MG, LONG TERM TREATMENT
     Route: 065
  6. IRBESARTAN AND HYDROCHLOROTHIAZIDE [Concomitant]
     Active Substance: HYDROCHLOROTHIAZIDE\IRBESARTAN
     Indication: Product used for unknown indication
     Dosage: UNK, QD (1 UNIT OF 300MG/12,5)
     Route: 065

REACTIONS (11)
  - General physical health deterioration [Unknown]
  - Subarachnoid haemorrhage [Unknown]
  - Prostate cancer [Unknown]
  - Malignant neoplasm progression [Unknown]
  - Vascular pseudoaneurysm [Unknown]
  - Anaemia [Unknown]
  - Thrombocytopenia [Unknown]
  - Dehydration [Unknown]
  - Bacterial infection [Unknown]
  - Treatment failure [Unknown]
  - Underdose [Unknown]

NARRATIVE: CASE EVENT DATE: 20230223
